FAERS Safety Report 12208259 (Version 3)
Quarter: 2016Q2

REPORT INFORMATION
  Report Type: Spontaneous
  Country: US (occurrence: US)
  Receive Date: 20160324
  Receipt Date: 20160509
  Transmission Date: 20160815
  Serious: Yes (Other)
  Sender: FDA-Public Use
  Company Number: US-BAYER-2016-052695

PATIENT
  Age: 92 Year
  Sex: Male
  Weight: 68.93 kg

DRUGS (3)
  1. BAYER GENUINE ASPIRIN [Suspect]
     Active Substance: ASPIRIN
     Indication: THROMBOSIS PROPHYLAXIS
     Dosage: 1 DF, QD
     Route: 048
     Dates: start: 1995
  2. MIRALAX [Suspect]
     Active Substance: POLYETHYLENE GLYCOL 3350
     Indication: GASTROINTESTINAL MOTILITY DISORDER
     Dosage: 1 DF, QD
     Route: 048
  3. BAYER GENUINE ASPIRIN [Suspect]
     Active Substance: ASPIRIN
     Indication: THROMBOSIS PROPHYLAXIS
     Dosage: 2 DF, 6ID
     Route: 048
     Dates: start: 1943, end: 1991

REACTIONS (5)
  - Product use issue [None]
  - Product use issue [None]
  - Haematochezia [Recovered/Resolved]
  - Arterial thrombosis [Recovered/Resolved]
  - Product use issue [None]

NARRATIVE: CASE EVENT DATE: 1943
